FAERS Safety Report 8437642 (Version 7)
Quarter: 2016Q4

REPORT INFORMATION
  Report Type: Report from Study
  Country: CN (occurrence: CN)
  Receive Date: 20120302
  Receipt Date: 20161215
  Transmission Date: 20170207
  Serious: Yes (Hospitalization)
  Sender: FDA-Public Use
  Company Number: PHHO2012CN003155

PATIENT
  Age: 57 Year
  Sex: Male
  Weight: 60 kg

DRUGS (6)
  1. DEXAMETHASONE. [Concomitant]
     Active Substance: DEXAMETHASONE
     Indication: EPIDIDYMITIS
     Dosage: 10 MG, QD
     Route: 065
     Dates: start: 20120131
  2. AMN107 [Suspect]
     Active Substance: NILOTINIB
     Dosage: 400 MG, QD
     Route: 048
     Dates: start: 20120322
  3. CEFAMANDOLE [Concomitant]
     Active Substance: CEFAMANDOLE
     Indication: EPIDIDYMITIS
     Dosage: 2.0 G, QD
     Route: 065
     Dates: start: 20120131
  4. FAMOTIDINE. [Concomitant]
     Active Substance: FAMOTIDINE
     Indication: STRESS ULCER
     Dosage: 20 MG, QD
     Route: 065
     Dates: start: 20120131
  5. AMN107 [Suspect]
     Active Substance: NILOTINIB
     Indication: CHRONIC MYELOID LEUKAEMIA
     Dosage: 600 MG, QD
     Route: 048
     Dates: start: 20111230, end: 20120213
  6. AMN107 [Suspect]
     Active Substance: NILOTINIB
     Dosage: NO TREATMENT
     Route: 065
     Dates: start: 20120214, end: 20120321

REACTIONS (1)
  - Hepatitis B [Recovering/Resolving]

NARRATIVE: CASE EVENT DATE: 20120214
